FAERS Safety Report 10076451 (Version 1)
Quarter: 2014Q2

REPORT INFORMATION
  Report Type: Report from Study
  Country: CA (occurrence: CA)
  Receive Date: 20140414
  Receipt Date: 20140414
  Transmission Date: 20141212
  Serious: Yes (Hospitalization)
  Sender: FDA-Public Use
  Company Number: CA-JNJFOC-20140406155

PATIENT
  Sex: Female
  Weight: 47.1 kg

DRUGS (7)
  1. REMICADE [Suspect]
     Indication: RHEUMATOID ARTHRITIS
     Dosage: APPROXIMATELY 2001
     Route: 042
     Dates: start: 2001
  2. REMICADE [Suspect]
     Indication: CROHN^S DISEASE
     Dosage: APPROXIMATELY 2001
     Route: 042
     Dates: start: 2001
  3. PREDNISONE [Concomitant]
     Route: 065
  4. PREDNISONE [Concomitant]
     Route: 065
  5. PANTOLOC [Concomitant]
     Route: 065
  6. LEVOTHYROXINE [Concomitant]
     Route: 065
  7. ELTROXIN [Concomitant]
     Route: 065

REACTIONS (6)
  - Abdominal pain upper [Unknown]
  - Respiratory tract infection fungal [Unknown]
  - Haemoglobin decreased [Unknown]
  - Sinus congestion [Unknown]
  - Vomiting [Unknown]
  - Diarrhoea [Unknown]
